FAERS Safety Report 9353137 (Version 1)
Quarter: 2013Q2

REPORT INFORMATION
  Report Type: Spontaneous
  Country: US (occurrence: None)
  Receive Date: 20130612
  Receipt Date: 20130612
  Transmission Date: 20140414
  Serious: Yes (Hospitalization)
  Sender: FDA-Public Use
  Company Number: ACO_36612_2013

PATIENT
  Age: 48 Year
  Sex: Male

DRUGS (7)
  1. AMPYRA (DALFAMPRIDINE) TABLET, 10MG [Suspect]
     Indication: PRODUCT USED FOR UNKNOWN INDICATION
  2. REBIF (INTERFERON BETA-1A) [Suspect]
     Indication: MULTIPLE SCLEROSIS
     Dates: start: 20120627
  3. NAPROXEN (NAPROXEN) [Suspect]
     Indication: PRODUCT USED FOR UNKNOWN INDICATION
  4. LASIX (FUROSEMIDE) [Concomitant]
  5. GABAPENTIN (GABAPENTIN) [Concomitant]
  6. OTHER ANALGESICS AND ANTIPYRETICS [Concomitant]
  7. SPIRONOLACTONE (SPIRONOLACTONE) [Concomitant]

REACTIONS (8)
  - Loss of consciousness [None]
  - Dehydration [None]
  - Communication disorder [None]
  - Renal impairment [None]
  - Blood pressure decreased [None]
  - Drug interaction [None]
  - Fall [None]
  - Accidental overdose [None]
